FAERS Safety Report 18235952 (Version 3)
Quarter: 2020Q3

REPORT INFORMATION
  Report Type: Report from Study
  Country: AR (occurrence: AR)
  Receive Date: 20200905
  Receipt Date: 20200918
  Transmission Date: 20201103
  Serious: Yes (Death, Hospitalization)
  Sender: FDA-Public Use
  Company Number: NVSC2020AR244428

PATIENT
  Age: 63 Year
  Sex: Male

DRUGS (4)
  1. TAFINLAR [Suspect]
     Active Substance: DABRAFENIB MESYLATE
     Indication: NEOPLASM MALIGNANT
     Dosage: 300 MG, QD
     Route: 048
     Dates: start: 20200619
  2. TAFINLAR [Suspect]
     Active Substance: DABRAFENIB MESYLATE
     Indication: THYROID CANCER
     Dosage: UNK, DOSE WAS REDUCED TO HALF
     Route: 065
  3. MEKINIST [Suspect]
     Active Substance: TRAMETINIB DIMETHYL SULFOXIDE
     Indication: THYROID CANCER
     Dosage: UNK, DOSE WAS REDUCED TO HALF
     Route: 065
  4. MEKINIST [Suspect]
     Active Substance: TRAMETINIB DIMETHYL SULFOXIDE
     Indication: NEOPLASM MALIGNANT
     Dosage: 2 MG, QD
     Route: 048
     Dates: start: 20200619

REACTIONS (17)
  - Anaemia [Unknown]
  - Tumour budding [Fatal]
  - Productive cough [Recovered/Resolved]
  - Asthenia [Unknown]
  - Decreased appetite [Unknown]
  - General physical health deterioration [Unknown]
  - Drug intolerance [Unknown]
  - Thyroid cancer [Fatal]
  - Weight decreased [Unknown]
  - Infected neoplasm [Unknown]
  - Speech disorder [Unknown]
  - Renal neoplasm [Fatal]
  - Haematocrit decreased [Unknown]
  - Fatigue [Unknown]
  - Inappropriate schedule of product administration [Unknown]
  - Malignant neoplasm progression [Fatal]
  - Gait inability [Unknown]

NARRATIVE: CASE EVENT DATE: 20200827
